FAERS Safety Report 8082638-6 (Version None)
Quarter: 2012Q1

REPORT INFORMATION
  Report Type: 
  Country: None (occurrence: None)
  Receive Date: 20120127
  Receipt Date: 20110217
  Transmission Date: 20120608
  Serious: No
  Sender: FDA-Public Use
  Company Number: US-ABBOTT-11P-163-0707424-00

PATIENT
  Sex: Female
  Weight: 48.124 kg

DRUGS (4)
  1. NEXIUM [Concomitant]
     Indication: DYSPHAGIA
  2. VITAMIN D [Concomitant]
     Indication: HYPOVITAMINOSIS
  3. SUCRALFATE [Concomitant]
     Indication: GASTRITIS EROSIVE
  4. HUMIRA [Suspect]
     Indication: COLITIS ULCERATIVE
     Dates: start: 20090101

REACTIONS (3)
  - INJECTION SITE PRURITUS [None]
  - INJECTION SITE ERYTHEMA [None]
  - INJECTION SITE URTICARIA [None]
